FAERS Safety Report 4280634-8 (Version None)
Quarter: 2004Q1

REPORT INFORMATION
  Report Type: 
  Country: None (occurrence: None)
  Receive Date: 20040127
  Receipt Date: 20040120
  Transmission Date: 20041129
  Serious: No
  Sender: FDA-Public Use
  Company Number: 2003UW16459

PATIENT
  Age: 35 Year
  Weight: 101.1521 kg

DRUGS (5)
  1. SEROQUEL [Suspect]
     Indication: AFFECTIVE DISORDER
     Dosage: 250 MG DAILY PO
     Route: 048
     Dates: start: 20030301, end: 20030901
  2. SEROQUEL [Suspect]
     Indication: AFFECTIVE DISORDER
     Dosage: 600 MG DAILY PO
     Route: 048
     Dates: start: 20030901, end: 20030901
  3. LEXAPRO [Concomitant]
  4. WELLBUTRIN SR [Concomitant]
  5. NEURONTIN [Concomitant]

REACTIONS (1)
  - SEROTONIN SYNDROME [None]
